FAERS Safety Report 5302188-7 (Version None)
Quarter: 2007Q2

REPORT INFORMATION
  Report Type: 
  Country: None (occurrence: None)
  Receive Date: 20070419
  Receipt Date: 20070417
  Transmission Date: 20071010
  Serious: Yes (Hospitalization)
  Sender: FDA-Public Use
  Company Number: DE-MERCK-0701DEU00028

PATIENT
  Age: 61 Year
  Sex: Female

DRUGS (1)
  1. MAXALT [Suspect]
     Indication: MIGRAINE
     Route: 048
     Dates: end: 20070109

REACTIONS (7)
  - BLOOD CREATINE PHOSPHOKINASE INCREASED [None]
  - EOSINOPHILIA [None]
  - MUSCLE ATROPHY [None]
  - MYOPATHY [None]
  - NEUROPATHY [None]
  - SOMATISATION DISORDER [None]
  - VASCULITIS [None]
